FAERS Safety Report 11058800 (Version 3)
Quarter: 2015Q2

REPORT INFORMATION
  Report Type: Spontaneous
  Country: CN (occurrence: None)
  Receive Date: 20150421
  Receipt Date: 20150629
  Transmission Date: 20150821
  Serious: Yes (Hospitalization, Other)
  Sender: FDA-Public Use
  Company Number: CN2015GSK052214

PATIENT
  Age: 45 Year
  Sex: Male

DRUGS (3)
  1. ADEFOVIR DIPIVOXIL (ADEFOVIR DIPIVOXIL) TABLET) [Suspect]
     Active Substance: ADEFOVIR DIPIVOXIL
     Indication: HEPATITIS B
     Route: 048
  2. HEPTODIN [Suspect]
     Active Substance: LAMIVUDINE
     Indication: HEPATITIS B
     Route: 048
     Dates: start: 2003
  3. ENTECAVIR (ENTECAVIR) UNKNOWN [Suspect]
     Active Substance: ENTECAVIR
     Indication: HEPATITIS B
     Route: 048

REACTIONS (6)
  - Product packaging quantity issue [None]
  - Viral infection [None]
  - Hepatic cirrhosis [None]
  - No therapeutic response [None]
  - Ascites [None]
  - Viral mutation identified [None]

NARRATIVE: CASE EVENT DATE: 2007
